FAERS Safety Report 16052738 (Version 1)
Quarter: 2019Q1

REPORT INFORMATION
  Report Type: Spontaneous
  Country: US (occurrence: US)
  Receive Date: 20190308
  Receipt Date: 20190308
  Transmission Date: 20190418
  Serious: No
  Sender: FDA-Public Use
  Company Number: US-JNJFOC-20190214386

PATIENT
  Sex: Female

DRUGS (5)
  1. XELJANZ [Concomitant]
     Active Substance: TOFACITINIB CITRATE
     Indication: ALOPECIA AREATA
     Route: 065
  2. TOPICORT                           /00370301/ [Concomitant]
     Indication: ALOPECIA AREATA
     Route: 061
  3. ROGAINE [Suspect]
     Active Substance: MINOXIDIL
     Route: 065
  4. KENALOG [Concomitant]
     Active Substance: TRIAMCINOLONE ACETONIDE
     Indication: ALOPECIA AREATA
     Dosage: RECEIVED 3 TIMES LAST YEAR
     Route: 026
  5. ROGAINE [Suspect]
     Active Substance: MINOXIDIL
     Indication: ALOPECIA AREATA
     Route: 065

REACTIONS (2)
  - Product use in unapproved indication [Unknown]
  - Contraindicated product administered [Unknown]
